FAERS Safety Report 16874528 (Version 4)
Quarter: 2023Q4

REPORT INFORMATION
  Report Type: Spontaneous
  Country: US (occurrence: None)
  Receive Date: 20191001
  Receipt Date: 20231222
  Transmission Date: 20240109
  Serious: Yes (Hospitalization, Other)
  Sender: FDA-Public Use
  Company Number: 2019SF36585

PATIENT
  Age: 303 Month
  Sex: Female
  Weight: 120.2 kg

DRUGS (53)
  1. FARXIGA [Suspect]
     Active Substance: DAPAGLIFLOZIN PROPANEDIOL
     Indication: Type 2 diabetes mellitus
     Route: 048
     Dates: start: 20170824
  2. FARXIGA [Suspect]
     Active Substance: DAPAGLIFLOZIN PROPANEDIOL
     Indication: Type 2 diabetes mellitus
     Route: 048
     Dates: start: 20170823
  3. FARXIGA [Suspect]
     Active Substance: DAPAGLIFLOZIN PROPANEDIOL
     Indication: Type 2 diabetes mellitus
     Dosage: GENERIC
     Route: 048
     Dates: start: 20180905
  4. FARXIGA [Suspect]
     Active Substance: DAPAGLIFLOZIN PROPANEDIOL
     Indication: Type 2 diabetes mellitus
     Route: 048
     Dates: end: 201709
  5. ZOSYN [Concomitant]
     Active Substance: PIPERACILLIN SODIUM\TAZOBACTAM SODIUM
  6. VANCOMYCIN [Concomitant]
     Active Substance: VANCOMYCIN
  7. HEPARIN [Concomitant]
     Active Substance: HEPARIN SODIUM
  8. ASCORBIC ACID [Concomitant]
     Active Substance: ASCORBIC ACID
  9. FLUCONAZOLE [Concomitant]
     Active Substance: FLUCONAZOLE
  10. DEXTROSE [Concomitant]
     Active Substance: DEXTROSE\DEXTROSE MONOHYDRATE
  11. CLINDAMYCIN [Concomitant]
     Active Substance: CLINDAMYCIN
  12. OXYCODONE [Concomitant]
     Active Substance: OXYCODONE
  13. SODIUM CHLORIDE [Concomitant]
     Active Substance: SODIUM CHLORIDE
  14. ONDANSETRON [Concomitant]
     Active Substance: ONDANSETRON
  15. TAZOBACTAM [Concomitant]
     Active Substance: TAZOBACTAM
  16. ALBUMIN HUMAN [Concomitant]
     Active Substance: ALBUMIN HUMAN
  17. DIPHENHYDRAMINE [Concomitant]
     Active Substance: DIPHENHYDRAMINE
  18. NALOXONE [Concomitant]
     Active Substance: NALOXONE
  19. HYDROMORPHONE [Concomitant]
     Active Substance: HYDROMORPHONE
  20. GLYCOPYRROLATE [Concomitant]
     Active Substance: GLYCOPYRROLATE
  21. PROPOFOL [Concomitant]
     Active Substance: PROPOFOL
  22. MIDAZOLAM [Concomitant]
     Active Substance: MIDAZOLAM
  23. ROCURONIUM [Concomitant]
     Active Substance: ROCURONIUM BROMIDE
  24. SUCCINYLCHOLINE [Concomitant]
     Active Substance: SUCCINYLCHOLINE
  25. AMPICILLIN [Concomitant]
     Active Substance: AMPICILLIN
  26. POLYETHYLENE GLYCOL [Concomitant]
     Active Substance: POLYETHYLENE GLYCOL
  27. ATROPINE [Concomitant]
     Active Substance: ATROPINE\ATROPINE SULFATE
  28. ACETAMINOPHEN [Concomitant]
     Active Substance: ACETAMINOPHEN
  29. FENTANYL [Concomitant]
     Active Substance: FENTANYL\FENTANYL CITRATE
  30. MEPERIDINE [Concomitant]
     Active Substance: MEPERIDINE
  31. PROMETHAZINE [Concomitant]
     Active Substance: PROMETHAZINE HYDROCHLORIDE
  32. METOCLOPRAMIDE [Concomitant]
     Active Substance: METOCLOPRAMIDE
  33. ATORVASTATIN [Concomitant]
     Active Substance: ATORVASTATIN
  34. LISINOPRIL [Concomitant]
     Active Substance: LISINOPRIL
  35. METFORMIN [Concomitant]
     Active Substance: METFORMIN HYDROCHLORIDE
     Indication: Diabetes mellitus
  36. VALTREX [Concomitant]
     Active Substance: VALACYCLOVIR HYDROCHLORIDE
  37. KETOROLAC [Concomitant]
     Active Substance: KETOROLAC TROMETHAMINE
  38. PROCHLORPERAZINE [Concomitant]
     Active Substance: PROCHLORPERAZINE
  39. PHENTERMINE [Concomitant]
     Active Substance: PHENTERMINE
  40. CYCLOBENZAPRINE [Concomitant]
     Active Substance: CYCLOBENZAPRINE
     Route: 048
     Dates: start: 20180918
  41. GLIPIZIDE [Concomitant]
     Active Substance: GLIPIZIDE
     Route: 048
     Dates: start: 20160907
  42. AZITHROMYCIN [Concomitant]
     Active Substance: AZITHROMYCIN
  43. JANUVIA [Concomitant]
     Active Substance: SITAGLIPTIN PHOSPHATE
  44. PHENTERMINE [Concomitant]
     Active Substance: PHENTERMINE
  45. CIPROFLOXACIN [Concomitant]
     Active Substance: CIPROFLOXACIN
  46. IBUPROFEN [Concomitant]
     Active Substance: IBUPROFEN
  47. ENOXAPARIN [Concomitant]
     Active Substance: ENOXAPARIN
  48. FERROUS SULFATE [Concomitant]
     Active Substance: FERROUS SULFATE
  49. OZEMPIC [Concomitant]
     Active Substance: SEMAGLUTIDE
  50. PREDNISONE [Concomitant]
     Active Substance: PREDNISONE
  51. NORETHINDRONE [Concomitant]
     Active Substance: NORETHINDRONE
     Dates: start: 20210927
  52. LIDOCAINE [Concomitant]
     Active Substance: LIDOCAINE
  53. PIPERACILLIN [Concomitant]
     Active Substance: PIPERACILLIN

REACTIONS (10)
  - Fournier^s gangrene [Unknown]
  - Sepsis [Unknown]
  - Necrotising fasciitis [Unknown]
  - Necrotising soft tissue infection [Unknown]
  - Groin infection [Unknown]
  - Soft tissue infection [Unknown]
  - Genital abscess [Unknown]
  - Anal abscess [Unknown]
  - Anxiety [Unknown]
  - Depression [Unknown]

NARRATIVE: CASE EVENT DATE: 20170901
